FAERS Safety Report 7959997-5 (Version None)
Quarter: 2011Q4

REPORT INFORMATION
  Report Type: 
  Country: None (occurrence: None)
  Receive Date: 20111206
  Receipt Date: 20111124
  Transmission Date: 20120403
  Serious: Yes (Other)
  Sender: FDA-Public Use
  Company Number: PHHY2009JP35275

PATIENT
  Age: 52 Year
  Sex: Male

DRUGS (5)
  1. METHYLPREDNISOLONE [Concomitant]
     Indication: RENAL TRANSPLANT
     Dosage: 4 MG/DAY
  2. SANDIMMUNE [Suspect]
     Indication: RENAL TRANSPLANT
     Dosage: 150 MG, UNK
     Route: 048
     Dates: start: 19881001, end: 20000301
  3. AZATHIOPRINE [Concomitant]
     Indication: RENAL TRANSPLANT
     Dosage: 40 MG, UNK
     Route: 048
     Dates: start: 19881001
  4. MEDROL [Concomitant]
     Indication: RENAL TRANSPLANT
     Dosage: 4 MG, UNK
     Route: 048
     Dates: start: 19881001
  5. QUETIAPINE [Concomitant]
     Dosage: UNK UKN, UNK

REACTIONS (17)
  - SPASTIC PARAPLEGIA [None]
  - TREMOR [None]
  - HYPOKINESIA [None]
  - MUSCULAR WEAKNESS [None]
  - PSYCHIATRIC SYMPTOM [None]
  - RENAL IMPAIRMENT [None]
  - CONSTIPATION [None]
  - MUSCLE SPASTICITY [None]
  - DELIRIUM [None]
  - TROPICAL SPASTIC PARESIS [None]
  - HYPERREFLEXIA [None]
  - DYSURIA [None]
  - HUMAN T-CELL LYMPHOTROPIC VIRUS TYPE I INFECTION [None]
  - SENSORY DISTURBANCE [None]
  - CLONUS [None]
  - NEUROGENIC BLADDER [None]
  - GAIT DISTURBANCE [None]
